FAERS Safety Report 18866755 (Version 1)
Quarter: 2021Q1

REPORT INFORMATION
  Report Type: Spontaneous
  Country: DE (occurrence: DE)
  Receive Date: 20210209
  Receipt Date: 20210209
  Transmission Date: 20210420
  Serious: Yes (Hospitalization, Other)
  Sender: FDA-Public Use
  Company Number: NVSC2021DE022964

PATIENT
  Age: 15 Year
  Sex: Male
  Weight: 63 kg

DRUGS (6)
  1. CERTICAN [Suspect]
     Active Substance: EVEROLIMUS
     Indication: RENAL TRANSPLANT
     Dosage: 2 DF, QD (DAILY DOSE: 2 DF DOSAGE FORM EVERY DAYS 2 SEPARATED DOSES)
     Route: 048
  2. PREDNISONE. [Suspect]
     Active Substance: PREDNISONE
     Indication: RENAL TRANSPLANT
     Dosage: 1 DF, QD (DAILY DOSE: 1 DF DOSAGE FORM EVERY DAYS)
     Route: 048
  3. SOLIRIS [Concomitant]
     Active Substance: ECULIZUMAB
     Indication: ATYPICAL HAEMOLYTIC URAEMIC SYNDROME
     Dosage: 600 MG, Q2W (DAILY DOSE: 600 MG MILLGRAM(S) EVERY 2 WEEKS)
     Route: 042
  4. SANDIMMUN OPTORAL [Suspect]
     Active Substance: CYCLOSPORINE
     Indication: RENAL TRANSPLANT
     Dosage: 250 MG, QD (DAILY DOSE: 250 MG MILLGRAM(S) EVERY DAYS 2 SEPARATED DOSES)
     Route: 048
  5. BICANORM [Concomitant]
     Active Substance: SODIUM BICARBONATE
     Indication: RENAL TUBULAR ACIDOSIS
     Dosage: 1 DF, QD (DAILY DOSE: 1 DF DOSAGE FORM EVERY DAYS)
     Route: 048
  6. NAHCO3 [Concomitant]
     Active Substance: SODIUM BICARBONATE
     Indication: RENAL TUBULAR ACIDOSIS
     Dosage: 20 ML  (LOSUNG)
     Route: 048

REACTIONS (2)
  - Nephritis [Unknown]
  - Pyrexia [Unknown]

NARRATIVE: CASE EVENT DATE: 20200210
